FAERS Safety Report 5619922-9 (Version None)
Quarter: 2008Q1

REPORT INFORMATION
  Report Type: 
  Country: None (occurrence: None)
  Receive Date: 20080208
  Receipt Date: 20070620
  Transmission Date: 20080703
  Serious: No
  Sender: FDA-Public Use
  Company Number: US-ABBOTT-07P-163-0372298-00

PATIENT

DRUGS (1)
  1. VICODIN [Suspect]
     Indication: FIBROMYALGIA
     Dosage: 5-500 TABLET
     Dates: start: 19970101

REACTIONS (3)
  - INFLUENZA [None]
  - MALAISE [None]
  - VOMITING [None]
